FAERS Safety Report 23475803 (Version 1)
Quarter: 2024Q1

REPORT INFORMATION
  Report Type: Report from Study
  Country: CA (occurrence: CA)
  Receive Date: 20240204
  Receipt Date: 20240204
  Transmission Date: 20240409
  Serious: No
  Sender: FDA-Public Use
  Company Number: CA-EXELIXIS-CABO-23060796

PATIENT
  Sex: Female

DRUGS (7)
  1. CABOMETYX [Suspect]
     Active Substance: CABOZANTINIB S-MALATE
     Indication: Thyroid cancer
     Dosage: 60 MG, QD
     Route: 048
     Dates: start: 20230208
  2. CABOMETYX [Suspect]
     Active Substance: CABOZANTINIB S-MALATE
     Dosage: 60 MG, QOD (ONE DAY ON, ONE DAY OFF)
     Route: 048
  3. RAMIPRIL [Concomitant]
     Active Substance: RAMIPRIL
  4. SYNTHROID [Concomitant]
     Active Substance: LEVOTHYROXINE SODIUM
  5. CALCIUM [Concomitant]
     Active Substance: CALCIUM
  6. FOLIC ACID [Concomitant]
     Active Substance: FOLIC ACID
  7. Omega [Concomitant]

REACTIONS (2)
  - Product prescribing issue [Unknown]
  - Inappropriate schedule of product administration [Unknown]
